FAERS Safety Report 4947859-7 (Version None)
Quarter: 2006Q1

REPORT INFORMATION
  Report Type: 
  Country: None (occurrence: None)
  Receive Date: 20060313
  Receipt Date: 20060301
  Transmission Date: 20060701
  Serious: Yes (Life-Threatening, Hospitalization)
  Sender: FDA-Public Use
  Company Number: GXKR2006DE00826

PATIENT
  Age: 79 Year
  Sex: Female
  Weight: 60 kg

DRUGS (2)
  1. EMBOLEX [Suspect]
     Indication: THROMBOSIS
     Dosage: 7800 IU, BID, SUBCUTANEOUS
     Route: 058
     Dates: start: 20060123, end: 20060131
  2. ACETYLSALICYLIC ACID (NGX) (ACETYLSALICYLIC ACID) 100MG [Suspect]
     Dosage: 100 MG, QD (O.M)

REACTIONS (5)
  - ANAEMIA [None]
  - ANTI-PLATELET ANTIBODY POSITIVE [None]
  - FALL [None]
  - INTRA-ABDOMINAL HAEMORRHAGE [None]
  - PHARMACEUTICAL PRODUCT COMPLAINT [None]
